FAERS Safety Report 14137478 (Version 1)
Quarter: 2017Q4

REPORT INFORMATION
  Report Type: Spontaneous
  Country: IT (occurrence: IT)
  Receive Date: 20171027
  Receipt Date: 20171027
  Transmission Date: 20180321
  Serious: Yes (Other)
  Sender: FDA-Public Use
  Company Number: IT-PFIZER INC-2017460097

PATIENT
  Sex: Male

DRUGS (1)
  1. CEFTRIAXONE SODIUM. [Suspect]
     Active Substance: CEFTRIAXONE SODIUM
     Dosage: UNK
     Route: 042

REACTIONS (4)
  - Drug resistance [Unknown]
  - Pyrexia [Recovered/Resolved]
  - Inflammation [Unknown]
  - Enterococcal infection [Unknown]
